FAERS Safety Report 24663634 (Version 1)
Quarter: 2024Q4

REPORT INFORMATION
  Report Type: Spontaneous
  Country: FR (occurrence: FR)
  Receive Date: 20241126
  Receipt Date: 20241126
  Transmission Date: 20250114
  Serious: Yes (Hospitalization)
  Sender: SANDOZ
  Company Number: None

PATIENT
  Age: 55 Year
  Sex: Male

DRUGS (24)
  1. CARBOPLATIN [Suspect]
     Active Substance: CARBOPLATIN
     Indication: Diarrhoea
     Dosage: 1480 MG
     Route: 042
     Dates: start: 20161121, end: 20161123
  2. ETOPOSIDE [Suspect]
     Active Substance: ETOPOSIDE
     Indication: Testicular seminoma (pure)
     Dosage: 2200 MG
     Route: 042
     Dates: start: 20161121, end: 20161123
  3. LOPERAMIDE [Suspect]
     Active Substance: LOPERAMIDE
     Indication: Diarrhoea
     Dosage: UNK
     Route: 048
     Dates: start: 20161127, end: 20161204
  4. FILGRASTIM [Suspect]
     Active Substance: FILGRASTIM
     Indication: Chemotherapy cytokine prophylaxis
     Dosage: 2 DF QD
     Route: 058
     Dates: start: 201611, end: 20161204
  5. ONDANSETRON [Suspect]
     Active Substance: ONDANSETRON
     Indication: Nausea
     Dosage: 8 MG QD
     Route: 042
     Dates: start: 20161128, end: 20161204
  6. PHLOROGLUCINOL [Suspect]
     Active Substance: PHLOROGLUCINOL
     Indication: Abdominal pain
     Dosage: 3 DF QD
     Route: 048
     Dates: start: 20161202, end: 20161204
  7. PRIMPERAN [Suspect]
     Active Substance: METOCLOPRAMIDE HYDROCHLORIDE
     Indication: Nausea
     Dosage: UNK
     Route: 048
     Dates: start: 20161129, end: 20161204
  8. RACECADOTRIL [Suspect]
     Active Substance: RACECADOTRIL
     Indication: Diarrhoea
     Dosage: UNK
     Route: 048
     Dates: start: 20161129, end: 20161204
  9. SMECTA [Suspect]
     Active Substance: MONTMORILLONITE
     Indication: Diarrhoea
     Dosage: UNK
     Route: 048
     Dates: start: 20161127, end: 20161204
  10. PIPERACILLIN SODIUM\TAZOBACTAM SODIUM [Suspect]
     Active Substance: PIPERACILLIN SODIUM\TAZOBACTAM SODIUM
     Indication: Febrile bone marrow aplasia
     Dosage: 12 G QD
     Route: 042
     Dates: start: 20161127, end: 20161204
  11. VANCOMYCIN [Suspect]
     Active Substance: VANCOMYCIN
     Indication: Febrile bone marrow aplasia
     Dosage: 2. G QD
     Route: 042
     Dates: start: 20161130, end: 20161202
  12. BISOPROLOL [Concomitant]
     Active Substance: BISOPROLOL
     Indication: Product used for unknown indication
     Dosage: UNK
     Route: 065
  13. POTASSIUM CHLORIDE [Concomitant]
     Active Substance: POTASSIUM CHLORIDE
     Indication: Product used for unknown indication
     Dosage: UNK
     Route: 065
  14. ESOMEPRAZOLE [Concomitant]
     Active Substance: ESOMEPRAZOLE
     Indication: Product used for unknown indication
     Dosage: UNK
     Route: 065
  15. FLUOXETINE [Concomitant]
     Active Substance: FLUOXETINE HYDROCHLORIDE
     Indication: Product used for unknown indication
     Dosage: UNK
     Route: 065
  16. KARDEGIC [Concomitant]
     Active Substance: ASPIRIN DL-LYSINE
     Indication: Product used for unknown indication
     Dosage: UNK
     Route: 065
  17. AMITRIPTYLINE HYDROCHLORIDE [Concomitant]
     Active Substance: AMITRIPTYLINE HYDROCHLORIDE
     Indication: Product used for unknown indication
     Dosage: UNK
     Route: 065
  18. OXYCODONE [Concomitant]
     Active Substance: OXYCODONE
     Indication: Product used for unknown indication
     Route: 065
  19. OXYCONTIN [Concomitant]
     Active Substance: OXYCODONE HYDROCHLORIDE
     Indication: Product used for unknown indication
     Route: 065
  20. ZOLPIDEM TARTRATE [Concomitant]
     Active Substance: ZOLPIDEM TARTRATE
     Indication: Product used for unknown indication
     Dosage: UNK
     Route: 065
  21. XANAX [Concomitant]
     Active Substance: ALPRAZOLAM
     Indication: Product used for unknown indication
     Route: 065
  22. XANAX [Concomitant]
     Active Substance: ALPRAZOLAM
     Route: 065
  23. XANAX [Concomitant]
     Active Substance: ALPRAZOLAM
     Route: 065
  24. XANAX [Concomitant]
     Active Substance: ALPRAZOLAM
     Route: 065

REACTIONS (1)
  - Acute kidney injury [Recovered/Resolved]

NARRATIVE: CASE EVENT DATE: 20161203
